FAERS Safety Report 11836136 (Version 1)
Quarter: 2015Q4

REPORT INFORMATION
  Report Type: Spontaneous
  Country: US (occurrence: None)
  Receive Date: 20151214
  Receipt Date: 20151214
  Transmission Date: 20160305
  Serious: Yes (Hospitalization)
  Sender: FDA-Public Use
  Company Number: None

PATIENT
  Age: 80 Year
  Sex: Male
  Weight: 96.8 kg

DRUGS (2)
  1. ALFUZOSIN [Suspect]
     Active Substance: ALFUZOSIN
     Indication: BENIGN PROSTATIC HYPERPLASIA
     Route: 048
     Dates: start: 20150616, end: 20150717
  2. ALFUZOSIN [Suspect]
     Active Substance: ALFUZOSIN
     Indication: ATRIAL FIBRILLATION
     Route: 048
     Dates: start: 20150616, end: 20150717

REACTIONS (5)
  - Chest pain [None]
  - Dyspnoea [None]
  - Cardiac failure congestive [None]
  - Electrocardiogram T wave inversion [None]
  - Fluid overload [None]

NARRATIVE: CASE EVENT DATE: 20150717
